FAERS Safety Report 22629753 (Version 1)
Quarter: 2023Q2

REPORT INFORMATION
  Report Type: Spontaneous
  Country: AU (occurrence: AU)
  Receive Date: 20230622
  Receipt Date: 20230622
  Transmission Date: 20230721
  Serious: Yes (Other)
  Sender: FDA-Public Use
  Company Number: AU-PHARMAMAR-2023PM000299

PATIENT
  Age: 64 Year
  Sex: Male
  Weight: 83 kg

DRUGS (4)
  1. ZEPZELCA [Suspect]
     Active Substance: LURBINECTEDIN
     Indication: Small cell lung cancer metastatic
     Dosage: UNK UNK, Q3W
     Route: 042
     Dates: start: 20220816, end: 20230411
  2. ZEPZELCA [Suspect]
     Active Substance: LURBINECTEDIN
     Dosage: 4.8 MILLIGRAM
     Route: 042
     Dates: end: 20230329
  3. ZEPZELCA [Suspect]
     Active Substance: LURBINECTEDIN
     Dosage: 4 MILLIGRAM
     Route: 042
     Dates: start: 20230329
  4. PANTOPRAZOLE [Concomitant]
     Active Substance: PANTOPRAZOLE
     Indication: Dyspepsia
     Dosage: 20 MILLIGRAM, QD
     Dates: start: 20221108

REACTIONS (2)
  - Thrombocytopenia [Recovered/Resolved]
  - Platelet count decreased [Not Recovered/Not Resolved]

NARRATIVE: CASE EVENT DATE: 20221008
